FAERS Safety Report 9226798 (Version 1)
Quarter: 2013Q2

REPORT INFORMATION
  Report Type: Spontaneous
  Country: US (occurrence: US)
  Receive Date: 20130412
  Receipt Date: 20130412
  Transmission Date: 20140414
  Serious: Yes (Other)
  Sender: FDA-Public Use
  Company Number: US-BAYER-2013-045175

PATIENT
  Age: 44 Year
  Sex: Female
  Weight: 69.16 kg

DRUGS (7)
  1. YAZ [Suspect]
  2. ZOLOFT [Concomitant]
     Dosage: UNK
     Route: 048
     Dates: start: 20080913
  3. IBUPROFEN [Concomitant]
     Dosage: 800 MG, UNK
     Route: 048
     Dates: start: 20080916
  4. HYDROCODONE W/APAP [Concomitant]
     Dosage: UNK
     Route: 048
     Dates: start: 20080915, end: 20081013
  5. MOTRIN [Concomitant]
     Dosage: UNK
     Route: 048
     Dates: start: 20081013
  6. TYLENOL [Concomitant]
     Dosage: UNK
     Dates: start: 20081013
  7. SINGULAIR [Concomitant]
     Dosage: UNK
     Route: 048
     Dates: start: 20081013

REACTIONS (1)
  - Deep vein thrombosis [None]
